FAERS Safety Report 5845990-5 (Version None)
Quarter: 2008Q3

REPORT INFORMATION
  Report Type: 
  Country: None (occurrence: None)
  Receive Date: 20080813
  Receipt Date: 20080804
  Transmission Date: 20090109
  Serious: Yes (Life-Threatening, Hospitalization)
  Sender: FDA-Public Use
  Company Number: 2008AL006537

PATIENT
  Age: 95 Year
  Sex: Female
  Weight: 56.246 kg

DRUGS (5)
  1. DIGOXIN [Suspect]
     Indication: HYPERTENSION
     Dosage: 0.125/0.25MG QD, PO; FEW YEARS
     Route: 048
  2. PLAVIX [Concomitant]
  3. KEPPRA [Concomitant]
  4. ENALAPRIL MALEATE [Concomitant]
  5. ASPIRIN [Concomitant]

REACTIONS (12)
  - ASTHENIA [None]
  - BLOOD PRESSURE INCREASED [None]
  - COMPLEX PARTIAL SEIZURES [None]
  - CONVULSION [None]
  - DISORIENTATION [None]
  - DIZZINESS [None]
  - DYSPNOEA [None]
  - PALLOR [None]
  - RALES [None]
  - RESPIRATORY RATE INCREASED [None]
  - THERAPEUTIC AGENT TOXICITY [None]
  - VERTIGO [None]
